FAERS Safety Report 24459857 (Version 1)
Quarter: 2024Q4

REPORT INFORMATION
  Report Type: Spontaneous
  Country: US (occurrence: US)
  Receive Date: 20241018
  Receipt Date: 20241018
  Transmission Date: 20250114
  Serious: No
  Sender: LEO PHARM
  Company Number: US-LEO Pharma-342492

PATIENT
  Sex: Male

DRUGS (9)
  1. ADBRY [Suspect]
     Active Substance: TRALOKINUMAB-LDRM
     Indication: Dermatitis atopic
     Dosage: DOSAGE : 150 MG/ML (4 SYRINGES) THEN 300 MG SUBCUTANEOUSLY EVERY OTHER WEEK
  2. ADBRY [Suspect]
     Active Substance: TRALOKINUMAB-LDRM
     Indication: Dermatitis atopic
     Dosage: DOSAGE : 150 MG/ML (4 SYRINGES) THEN 300 MG SUBCUTANEOUSLY EVERY OTHER WEEK
  3. PREDNISONE [Concomitant]
     Active Substance: PREDNISONE
     Indication: Product used for unknown indication
  4. SIMVASTATIN [Concomitant]
     Active Substance: SIMVASTATIN
     Indication: Product used for unknown indication
  5. METOPROLOL [Concomitant]
     Active Substance: METOPROLOL
     Indication: Product used for unknown indication
  6. OMEPRAZOLE [Concomitant]
     Active Substance: OMEPRAZOLE
     Indication: Product used for unknown indication
  7. HYDROXYZINE [Concomitant]
     Active Substance: HYDROXYZINE HYDROCHLORIDE
     Indication: Product used for unknown indication
  8. ESCITALOPRAM [Concomitant]
     Active Substance: ESCITALOPRAM OXALATE
     Indication: Product used for unknown indication
  9. Aspirin TBE [Concomitant]
     Indication: Product used for unknown indication

REACTIONS (4)
  - Rash macular [Unknown]
  - Contusion [Unknown]
  - Contusion [Unknown]
  - Pruritus [Recovered/Resolved]
